FAERS Safety Report 5119772-6 (Version None)
Quarter: 2006Q3

REPORT INFORMATION
  Report Type: 
  Country: None (occurrence: None)
  Receive Date: 20060928
  Receipt Date: 20060920
  Transmission Date: 20061208
  Serious: Yes (Other)
  Sender: FDA-Public Use
  Company Number: 2006113327

PATIENT
  Age: 73 Year
  Sex: Female
  Weight: 70.3075 kg

DRUGS (7)
  1. XALATAN [Suspect]
     Indication: GLAUCOMA
     Dosage: 1.5 MCG (1.5 MCG,1 IN 1 D)
  2. CYCLOSPORINE [Concomitant]
  3. CRESTOR [Concomitant]
  4. NORVASC [Concomitant]
  5. VITAMINS [Concomitant]
  6. TAMSULOSIN HYDROCHLORIDE [Concomitant]
  7. IBANDRONATE SODIUM [Concomitant]

REACTIONS (7)
  - CATARACT OPERATION [None]
  - DENTAL CARIES [None]
  - DYSGEUSIA [None]
  - FEELING ABNORMAL [None]
  - GLOSSITIS [None]
  - GLOSSODYNIA [None]
  - MIDDLE INSOMNIA [None]
